FAERS Safety Report 15204042 (Version 2)
Quarter: 2018Q3

REPORT INFORMATION
  Report Type: Report from Study
  Country: US (occurrence: US)
  Receive Date: 20180726
  Receipt Date: 20180905
  Transmission Date: 20181010
  Serious: Yes (Other)
  Sender: FDA-Public Use
  Company Number: US-TEVA-2018-US-929720

PATIENT
  Age: 58 Year
  Sex: Female

DRUGS (6)
  1. COPAXONE [Suspect]
     Active Substance: GLATIRAMER ACETATE
     Indication: MULTIPLE SCLEROSIS
     Route: 058
     Dates: start: 20180707, end: 20180716
  2. CYANOCOBALAMINE [Concomitant]
     Active Substance: CYANOCOBALAMIN
     Dosage: 1 MONTH
     Route: 065
  3. PANTOPRAZOLE [Concomitant]
     Active Substance: PANTOPRAZOLE
     Route: 065
  4. PAROXETINE. [Concomitant]
     Active Substance: PAROXETINE
     Route: 065
  5. FLUTICASONE. [Concomitant]
     Active Substance: FLUTICASONE
     Dosage: 1 PUFF, 2X DAY
     Route: 065
  6. CLARITIN [Concomitant]
     Active Substance: LORATADINE
     Route: 065

REACTIONS (15)
  - Chest pain [Recovered/Resolved]
  - Asthenia [Recovered/Resolved]
  - Feeling abnormal [Recovered/Resolved]
  - Chills [Recovered/Resolved]
  - Vomiting [Recovered/Resolved]
  - Musculoskeletal stiffness [Recovered/Resolved]
  - White blood cell count decreased [Recovered/Resolved]
  - Multiple sclerosis relapse [Recovered/Resolved]
  - Balance disorder [Recovered/Resolved]
  - Hypertension [Recovered/Resolved]
  - Gait inability [Recovered/Resolved]
  - Injection related reaction [Unknown]
  - Headache [Recovered/Resolved]
  - Skin discolouration [Recovered/Resolved]
  - Tremor [Recovered/Resolved]

NARRATIVE: CASE EVENT DATE: 20180713
